FAERS Safety Report 5487034-3 (Version None)
Quarter: 2007Q3

REPORT INFORMATION
  Report Type: 
  Country: None (occurrence: None)
  Receive Date: 20070925
  Receipt Date: 20070914
  Transmission Date: 20080115
  Serious: No
  Sender: FDA-Public Use
  Company Number: 2007US001633

PATIENT
  Age: 65 Year
  Sex: Female

DRUGS (2)
  1. VESICARE [Suspect]
     Indication: BLADDER DISORDER
     Dosage: 10 MG, ORAL
     Route: 048
  2. ANTACID TAB [Concomitant]

REACTIONS (3)
  - DRY MOUTH [None]
  - DYSPEPSIA [None]
  - RASH [None]
